FAERS Safety Report 23570893 (Version 1)
Quarter: 2024Q1

REPORT INFORMATION
  Report Type: Spontaneous
  Country: US (occurrence: US)
  Receive Date: 20240227
  Receipt Date: 20240227
  Transmission Date: 20240410
  Serious: Yes (Life-Threatening, Hospitalization, Other)
  Sender: FDA-Public Use
  Company Number: US-FreseniusKabi-FK202403067

PATIENT
  Age: 74 Year
  Sex: Male

DRUGS (13)
  1. KETAMINE [Suspect]
     Active Substance: KETAMINE
     Indication: New onset refractory status epilepticus
     Dosage: 60 MG (0.5 MG/KG) BOLUS?FORM OF ADMINISTRATION: INFUSION
     Route: 040
  2. KETAMINE [Suspect]
     Active Substance: KETAMINE
     Dosage: INFUSION DOSE OF 1 MG/KG/H WAS STARTED ON DAY 4 OF ADMISSION.
     Route: 042
  3. KETAMINE [Suspect]
     Active Substance: KETAMINE
     Dosage: TITRATED UP TO A MAXIMUM OF 7.5 MG/KG/H ON DAY 5 OF ADMISSION?FORM OF ADMINISTRATION: INFUSION
     Route: 042
  4. LORAZEPAM [Concomitant]
     Active Substance: LORAZEPAM
     Indication: Generalised tonic-clonic seizure
     Dosage: INTRAVENOUS
  5. FOSPHENYTOIN [Concomitant]
     Active Substance: FOSPHENYTOIN
     Indication: Generalised tonic-clonic seizure
     Dosage: LOADING DOSE
  6. LEVETIRACETAM [Concomitant]
     Active Substance: LEVETIRACETAM
     Indication: Status epilepticus
     Dosage: TWICE DAILY
  7. MIDAZOLAM [Concomitant]
     Active Substance: MIDAZOLAM
     Indication: Status epilepticus
     Dosage: CONTINUED ESCALATION OF MIDAZOLAM INFUSION?TO A DOSE OF 20 MG/H?FORM: INFUSION
  8. PHENYTOIN [Concomitant]
     Active Substance: PHENYTOIN
     Indication: Status epilepticus
  9. LACOSAMIDE [Concomitant]
     Active Substance: LACOSAMIDE
     Indication: Status epilepticus
     Dosage: (200 MG LOADING DOSE FOLLOWED BY 100 MG TWICE DAILY)
  10. PROPOFOL [Concomitant]
     Active Substance: PROPOFOL
     Indication: Status epilepticus
  11. VANCOMYCIN [Concomitant]
     Active Substance: VANCOMYCIN
     Indication: Antibiotic therapy
  12. PIPERACILLIN SODIUM\TAZOBACTAM SODIUM [Concomitant]
     Active Substance: PIPERACILLIN SODIUM\TAZOBACTAM SODIUM
     Indication: Antibiotic therapy
  13. CEFEPIME [Concomitant]
     Active Substance: CEFEPIME HYDROCHLORIDE
     Indication: Staphylococcal infection
     Dosage: ON DAY 5 OF ADMISSION

REACTIONS (1)
  - Abdominal compartment syndrome [Recovering/Resolving]
